FAERS Safety Report 22039198 (Version 1)
Quarter: 2023Q1

REPORT INFORMATION
  Report Type: Spontaneous
  Country: US (occurrence: None)
  Receive Date: 20230223
  Receipt Date: 20230223
  Transmission Date: 20230418
  Serious: No
  Sender: FDA-Public Use
  Company Number: None

PATIENT
  Sex: Male

DRUGS (1)
  1. PROMACTA [Suspect]
     Active Substance: ELTROMBOPAG OLAMINE
     Indication: Refractory cytopenia with unilineage dysplasia
     Dosage: 75MG DAILY ORAL?
     Route: 048
     Dates: start: 202211

REACTIONS (3)
  - Joint swelling [None]
  - Contusion [None]
  - Therapy cessation [None]
